FAERS Safety Report 9289204 (Version 3)
Quarter: 2013Q3

REPORT INFORMATION
  Report Type: Spontaneous
  Country: GB (occurrence: US)
  Receive Date: 20130514
  Receipt Date: 20130702
  Transmission Date: 20140515
  Serious: Yes (Death, Other)
  Sender: FDA-Public Use
  Company Number: GB-ACTELION-A-US2013-83208

PATIENT
  Age: 61 Year
  Sex: Female

DRUGS (2)
  1. VENTAVIS [Suspect]
     Indication: PRODUCT USED FOR UNKNOWN INDICATION
     Route: 055
  2. LETAIRIS [Suspect]
     Dosage: 10 MG (TITER), UNK
     Dates: start: 20130411, end: 20130517

REACTIONS (3)
  - Plasma cell myeloma [Fatal]
  - Pulmonary arterial hypertension [Fatal]
  - Dyspnoea [Unknown]
